FAERS Safety Report 11914194 (Version 1)
Quarter: 2016Q1

REPORT INFORMATION
  Report Type: Spontaneous
  Country: US (occurrence: US)
  Receive Date: 20160113
  Receipt Date: 20160113
  Transmission Date: 20160526
  Serious: Yes (Other)
  Sender: FDA-Public Use
  Company Number: US-BAYER-2016-003562

PATIENT
  Sex: Female
  Weight: 2.9 kg

DRUGS (2)
  1. NIFEDIPINE. [Suspect]
     Active Substance: NIFEDIPINE
     Dosage: AT 29 WEEKS OF PREGNANCY OF MOTHER
  2. NIFEDIPINE. [Suspect]
     Active Substance: NIFEDIPINE
     Dosage: AT 29 WEEKS OF PREGNANCY OF MOTHER

REACTIONS (3)
  - Premature baby [None]
  - Foetal exposure during pregnancy [None]
  - Apgar score low [None]
